FAERS Safety Report 9295738 (Version 1)
Quarter: 2013Q1

REPORT INFORMATION
  Report Type: Spontaneous
  Country: US (occurrence: None)
  Receive Date: 20130103
  Receipt Date: 20130103
  Transmission Date: 20140127
  Serious: No
  Sender: FDA-Public Use
  Company Number: DSA_58612_2012

PATIENT
  Sex: Female
  Weight: 75.3 kg

DRUGS (3)
  1. XENAZINE [Suspect]
     Indication: TARDIVE DYSKINESIA
     Route: 048
     Dates: start: 201110
  2. PROZAC [Concomitant]
  3. WATER PILL [Concomitant]

REACTIONS (1)
  - Parkinsonism [None]
